FAERS Safety Report 24000766 (Version 2)
Quarter: 2025Q1

REPORT INFORMATION
  Report Type: Spontaneous
  Country: CZ (occurrence: CZ)
  Receive Date: 20240621
  Receipt Date: 20250325
  Transmission Date: 20250409
  Serious: Yes (Hospitalization)
  Sender: TAKEDA
  Company Number: CZ-TAKEDA-2024TUS059376

PATIENT
  Sex: Male

DRUGS (1)
  1. ALUNBRIG [Suspect]
     Active Substance: BRIGATINIB
     Indication: Non-small cell lung cancer
     Dosage: 180 MILLIGRAM, QD
     Dates: start: 20240110

REACTIONS (12)
  - Hepatomegaly [Unknown]
  - Gamma-glutamyltransferase increased [Unknown]
  - Aspartate aminotransferase increased [Unknown]
  - Alanine aminotransferase increased [Unknown]
  - Abdominal pain upper [Unknown]
  - Overdose [Unknown]
  - Incorrect dose administered [Unknown]
  - Muscular weakness [Unknown]
  - Gait disturbance [Unknown]
  - Myalgia [Unknown]
  - Blood creatine phosphokinase increased [Unknown]
  - Arthralgia [Unknown]
